FAERS Safety Report 16575496 (Version 1)
Quarter: 2019Q3

REPORT INFORMATION
  Report Type: Spontaneous
  Country: US (occurrence: US)
  Receive Date: 20190716
  Receipt Date: 20190716
  Transmission Date: 20191004
  Serious: No
  Sender: FDA-Public Use
  Company Number: US-AMGEN-USASP2019110938

PATIENT
  Age: 62 Year
  Sex: Male

DRUGS (3)
  1. CALCITRIOL. [Concomitant]
     Active Substance: CALCITRIOL
     Dosage: UNK UNK, 3 TIMES/WK
  2. CALCITRIOL. [Concomitant]
     Active Substance: CALCITRIOL
     Dosage: 1 MICROGRAM, QD
  3. PROLIA [Suspect]
     Active Substance: DENOSUMAB
     Indication: OSTEOPOROSIS
     Dosage: UNK
     Route: 065

REACTIONS (2)
  - Hypocalcaemia [Unknown]
  - Blood parathyroid hormone increased [Unknown]
